FAERS Safety Report 11227925 (Version 1)
Quarter: 2015Q2

REPORT INFORMATION
  Report Type: Spontaneous
  Country: US (occurrence: None)
  Receive Date: 20150629
  Receipt Date: 20150629
  Transmission Date: 20150821
  Serious: Yes (Other)
  Sender: FDA-Public Use
  Company Number: None

PATIENT
  Age: 66 Year
  Sex: Female
  Weight: 90.27 kg

DRUGS (1)
  1. JETREA [Suspect]
     Active Substance: OCRIPLASMIN
     Indication: VITREOUS ADHESIONS
     Dosage: 0.125 MG/ 0.1ML 1X INTRAVITREAL RIGHT EYE
     Dates: start: 20150613

REACTIONS (2)
  - Pupillary reflex impaired [None]
  - Photopsia [None]

NARRATIVE: CASE EVENT DATE: 20150613
